FAERS Safety Report 16497201 (Version 1)
Quarter: 2019Q2

REPORT INFORMATION
  Report Type: Spontaneous
  Country: SE (occurrence: SE)
  Receive Date: 20190628
  Receipt Date: 20190628
  Transmission Date: 20190711
  Serious: Yes (Other)
  Sender: FDA-Public Use
  Company Number: SE-JAZZ-2019-SE-004991

PATIENT
  Age: 27 Year
  Sex: Female

DRUGS (1)
  1. XYREM [Suspect]
     Active Substance: SODIUM OXYBATE
     Indication: NARCOLEPSY
     Dosage: 5.5 G, QD
     Route: 048
     Dates: start: 20190315

REACTIONS (4)
  - Respiratory depression [Recovered/Resolved]
  - Anxiety [Recovered/Resolved]
  - Extra dose administered [Unknown]
  - Nausea [Recovered/Resolved]
